FAERS Safety Report 5211797-5 (Version None)
Quarter: 2007Q1

REPORT INFORMATION
  Report Type: 
  Country: None (occurrence: None)
  Receive Date: 20070118
  Receipt Date: 20070105
  Transmission Date: 20070707
  Serious: Yes (Hospitalization)
  Sender: FDA-Public Use
  Company Number: US-ROCHE-477883

PATIENT
  Sex: Male

DRUGS (2)
  1. PEG-INTERFERON ALFA 2A (RO 25-8310) [Suspect]
     Indication: HEPATITIS C VIRUS
     Route: 058
     Dates: start: 20060206, end: 20060609
  2. RIBAVIRIN [Suspect]
     Indication: HEPATITIS C VIRUS
     Route: 048
     Dates: start: 20060206, end: 20060609

REACTIONS (1)
  - CELLULITIS [None]
